FAERS Safety Report 6612426-6 (Version None)
Quarter: 2010Q1

REPORT INFORMATION
  Report Type: 
  Country: None (occurrence: None)
  Receive Date: 20100303
  Receipt Date: 20100224
  Transmission Date: 20100710
  Serious: Yes (Other)
  Sender: FDA-Public Use
  Company Number: PHHO2008DE09858

PATIENT
  Sex: Male
  Weight: 68 kg

DRUGS (5)
  1. ZOLEDRONATE T29581+SOLINJ+BM [Suspect]
     Indication: METASTASES TO BONE
     Dosage: 4MG EVERY 4 WEEKS
     Route: 042
     Dates: start: 20071130
  2. SANDOCAL ^NOVARTIS^ [Concomitant]
  3. TAXOTERE [Suspect]
     Indication: PROSTATE CANCER
     Dosage: 57MG WEEKLY
     Route: 042
     Dates: start: 20080118
  4. CORTICOSTEROIDS [Concomitant]
  5. ASPIRIN [Concomitant]

REACTIONS (9)
  - BONE DISORDER [None]
  - DENTAL CARIES [None]
  - DISEASE PROGRESSION [None]
  - GINGIVAL ERYTHEMA [None]
  - GINGIVAL INFECTION [None]
  - GINGIVAL SWELLING [None]
  - IMPAIRED HEALING [None]
  - PAIN [None]
  - TOOTH EXTRACTION [None]
